FAERS Safety Report 9222480 (Version 3)
Quarter: 2018Q2

REPORT INFORMATION
  Report Type: Report from Study
  Country: US (occurrence: US)
  Receive Date: 20130410
  Receipt Date: 20180424
  Transmission Date: 20180711
  Serious: Yes (Other)
  Sender: FDA-Public Use
  Company Number: US-SANOFI-AVENTIS-2013SA036017

PATIENT
  Age: 56 Year
  Sex: Female

DRUGS (3)
  1. AUBAGIO [Suspect]
     Active Substance: TERIFLUNOMIDE
     Indication: MULTIPLE SCLEROSIS
     Route: 048
     Dates: start: 201303, end: 20130501
  2. AUBAGIO [Suspect]
     Active Substance: TERIFLUNOMIDE
     Indication: MULTIPLE SCLEROSIS
     Route: 048
     Dates: start: 20130205
  3. AUBAGIO [Suspect]
     Active Substance: TERIFLUNOMIDE
     Indication: MULTIPLE SCLEROSIS
     Route: 048
     Dates: start: 20180202, end: 201804

REACTIONS (10)
  - Urinary tract infection [Unknown]
  - Nausea [Recovered/Resolved]
  - Suicidal ideation [Recovered/Resolved]
  - Diarrhoea [Recovered/Resolved]
  - Depression [Unknown]
  - Pain in extremity [Not Recovered/Not Resolved]
  - Musculoskeletal disorder [Not Recovered/Not Resolved]
  - Corrective lens user [Not Recovered/Not Resolved]
  - Skin exfoliation [Recovered/Resolved]
  - Back pain [Not Recovered/Not Resolved]
